FAERS Safety Report 6354539-2 (Version None)
Quarter: 2009Q3

REPORT INFORMATION
  Report Type: 
  Country: None (occurrence: None)
  Receive Date: 20090914
  Receipt Date: 20090910
  Transmission Date: 20100115
  Serious: Yes (Hospitalization)
  Sender: FDA-Public Use
  Company Number: FR-BRISTOL-MYERS SQUIBB COMPANY-14773618

PATIENT
  Age: 49 Year
  Sex: Male

DRUGS (2)
  1. ABILIFY [Suspect]
     Dosage: INCREASED FROM 5MG/D TO 15MG AND THEN TO 20MG/D
     Dates: start: 20090701, end: 20090801
  2. RISPERDAL [Suspect]

REACTIONS (3)
  - CONFUSIONAL STATE [None]
  - LUNG DISORDER [None]
  - URINARY RETENTION [None]
